FAERS Safety Report 19232469 (Version 1)
Quarter: 2021Q2

REPORT INFORMATION
  Report Type: Spontaneous
  Country: ES (occurrence: ES)
  Receive Date: 20210507
  Receipt Date: 20210507
  Transmission Date: 20210717
  Serious: Yes (Death, Hospitalization, Other)
  Sender: FDA-Public Use
  Company Number: ES-AUROBINDO-AUR-APL-2010-01314

PATIENT
  Age: 5 Year
  Sex: Male

DRUGS (1)
  1. ONDANSETRON [Suspect]
     Active Substance: ONDANSETRON
     Indication: PRODUCT USED FOR UNKNOWN INDICATION
     Dosage: 2 MILLIGRAM
     Route: 060

REACTIONS (5)
  - Muscle rigidity [Unknown]
  - Sudden death [Fatal]
  - Cardiac arrest [Unknown]
  - Hyperthermia [Unknown]
  - Hyperthermia malignant [Unknown]
